FAERS Safety Report 16887424 (Version 1)
Quarter: 2019Q4

REPORT INFORMATION
  Report Type: Spontaneous
  Country: CN (occurrence: CN)
  Receive Date: 20191004
  Receipt Date: 20191004
  Transmission Date: 20200122
  Serious: Yes (Hospitalization, Other)
  Sender: FDA-Public Use
  Company Number: CN-BAXTER-2019BAX019384

PATIENT
  Age: 56 Year
  Sex: Female
  Weight: 79 kg

DRUGS (16)
  1. 0.9% SODIUM CHLORIDE INJECTION [Suspect]
     Active Substance: SODIUM CHLORIDE
     Dosage: 5TH CYCLE; CYCLOPHOSPHAMIDE 0.8 G + 0.9% NS
     Route: 041
     Dates: start: 20190907, end: 20190907
  2. ENDOXAN [Suspect]
     Active Substance: CYCLOPHOSPHAMIDE
     Dosage: 4TH CYCLE; CYCLOPHOSPHAMIDE + 0.9% NS 100 ML
     Route: 041
     Dates: start: 20190816, end: 20190816
  3. 0.9% SODIUM CHLORIDE INJECTION [Suspect]
     Active Substance: SODIUM CHLORIDE
     Dosage: 4TH CYCLE; CYCLOPHOSPHAMIDE 0.8 G + 0.9% NS
     Route: 041
     Dates: start: 20190816, end: 20190816
  4. DOXORUBICIN HYDROCHLORIDE. [Suspect]
     Active Substance: DOXORUBICIN HYDROCHLORIDE
     Dosage: 4TH CYCLE; DOXORUBICIN HYDROCHLORIDE + 5% GS 250 ML
     Route: 041
     Dates: start: 20190816, end: 20190816
  5. DOXORUBICIN HYDROCHLORIDE. [Suspect]
     Active Substance: DOXORUBICIN HYDROCHLORIDE
     Dosage: 5TH CYCLE; DOXORUBICIN HYDROCHLORIDE + 5% GS 250 ML
     Route: 041
     Dates: start: 20190907, end: 20190907
  6. ENDOXAN [Suspect]
     Active Substance: CYCLOPHOSPHAMIDE
     Indication: BREAST CANCER FEMALE
     Dosage: RECEIVED 1ST TO 3RD CYCLE; CYCLOPHOSPHAMIDE + 0.9% NS
     Route: 041
  7. 5% GLUCOSE  INJECTION [Suspect]
     Active Substance: DEXTROSE
     Dosage: 5TH CYCLE; DOXORUBICIN HYDROCHLORIDE 60 MG + 5% GS
     Route: 041
     Dates: start: 20190907, end: 20190907
  8. 0.9% SODIUM CHLORIDE INJECTION [Suspect]
     Active Substance: SODIUM CHLORIDE
     Indication: MEDICATION DILUTION
     Dosage: RECEIVED 1ST TO 3RD CYCLE; CYCLOPHOSPHAMIDE + 0.9% NS
     Route: 041
  9. 5% GLUCOSE  INJECTION [Suspect]
     Active Substance: DEXTROSE
     Indication: MEDICATION DILUTION
     Dosage: RECEIVED 1ST TO 3RD CYCLE; DOXORUBICIN HYDROCHLORIDE + 5% GS
     Route: 041
  10. 5% GLUCOSE  INJECTION [Suspect]
     Active Substance: DEXTROSE
     Dosage: 4TH CYCLE; DOXORUBICIN HYDROCHLORIDE 60 MG + 5% GS
     Route: 041
     Dates: start: 20190816, end: 20190816
  11. DOXORUBICIN HYDROCHLORIDE. [Suspect]
     Active Substance: DOXORUBICIN HYDROCHLORIDE
     Indication: BREAST CANCER FEMALE
     Dosage: RECEIVED 1ST TO 3RD CYCLE; DOXORUBICIN HYDROCHLORIDE + 5% GS
     Route: 041
  12. ENDOXAN [Suspect]
     Active Substance: CYCLOPHOSPHAMIDE
     Dosage: 5TH CYCLE; CYCLOPHOSPHAMIDE + 0.9% NS 100 ML
     Route: 041
     Dates: start: 20190907, end: 20190907
  13. ENDOXAN [Suspect]
     Active Substance: CYCLOPHOSPHAMIDE
     Dosage: DOSE RE-INTRODUCED; CYCLOPHOSPHAMIDE + 0.9% NS
     Route: 041
     Dates: start: 201909, end: 201909
  14. 0.9% SODIUM CHLORIDE INJECTION [Suspect]
     Active Substance: SODIUM CHLORIDE
     Dosage: DOSE RE-INTRODUCED; CYCLOPHOSPHAMIDE + 0.9% NS
     Route: 041
     Dates: start: 201909, end: 201909
  15. 5% GLUCOSE  INJECTION [Suspect]
     Active Substance: DEXTROSE
     Dosage: DOSE RE-INTRODUCED; DOXORUBICIN HYDROCHLORIDE + 5% GS
     Route: 041
     Dates: start: 201909, end: 201909
  16. DOXORUBICIN HYDROCHLORIDE. [Suspect]
     Active Substance: DOXORUBICIN HYDROCHLORIDE
     Dosage: DOSE RE-INTRODUCED; DOXORUBICIN HYDROCHLORIDE + 5% GS
     Route: 041
     Dates: start: 201909, end: 201909

REACTIONS (2)
  - Leukopenia [Recovering/Resolving]
  - Neutropenia [Recovering/Resolving]

NARRATIVE: CASE EVENT DATE: 20190916
